FAERS Safety Report 9805834 (Version 1)
Quarter: 2014Q1

REPORT INFORMATION
  Report Type: Spontaneous
  Country: BR (occurrence: BR)
  Receive Date: 20140109
  Receipt Date: 20140109
  Transmission Date: 20141002
  Serious: Yes (Hospitalization, Other)
  Sender: FDA-Public Use
  Company Number: PHHY2014BR001942

PATIENT
  Age: 18 Year
  Sex: Female

DRUGS (4)
  1. TRILEPTAL [Suspect]
     Indication: CONVULSION
     Dosage: 600 MG, DAILY (2 TABLETS OF 300 MG DAILY)
     Route: 048
  2. TRILEPTAL [Suspect]
     Dosage: 1200 MG, DAILY (2 TABLETS OF 600 MG DAILY)
     Route: 048
  3. FOLACIN [Suspect]
     Indication: ANTICOAGULANT THERAPY
     Dosage: 1 DF, DAILY
     Route: 048
  4. CITALOPRAM [Suspect]
     Indication: SEDATIVE THERAPY
     Dosage: 1 DF, DAILY
     Route: 048

REACTIONS (3)
  - Cerebrovascular accident [Recovered/Resolved]
  - Sensory loss [Recovered/Resolved]
  - Hypokinesia [Recovered/Resolved]
